FAERS Safety Report 8094049-8 (Version None)
Quarter: 2012Q1

REPORT INFORMATION
  Report Type: 
  Country: None (occurrence: None)
  Receive Date: 20120131
  Receipt Date: 20120126
  Transmission Date: 20120608
  Serious: Yes (Death, Hospitalization)
  Sender: FDA-Public Use
  Company Number: IT-BRISTOL-MYERS SQUIBB COMPANY-15901556

PATIENT
  Age: 62 Year
  Sex: Female

DRUGS (8)
  1. ARAVA [Concomitant]
     Dosage: 20MG FILM COATED TABS THERAPY:SINCE 3 YEARS
     Route: 048
  2. RABEPRAZOLE SODIUM [Concomitant]
     Dosage: TABS SINCE 3 YEARS
     Route: 048
  3. NICARDIPINE HCL [Concomitant]
     Dosage: MODIFIED RELEASE CAPS SINCE 2 YEARS. 1CAP
     Route: 048
  4. NERIXIA [Concomitant]
     Dosage: 1 VIAL / MONTH
  5. CAPILLAREMA [Concomitant]
     Dosage: 1 DF= 1 CAP.
  6. DIBASE [Concomitant]
     Dosage: DIBASE 1ML INJECTABLE SOLUTION FOR ORAL AND INTRAMUSCULAR USE ALSO 100000IU
  7. ORENCIA [Suspect]
     Indication: RHEUMATOID ARTHRITIS
     Route: 042
     Dates: start: 20091201, end: 20110628
  8. PREDNISONE TAB [Concomitant]
     Dosage: DELTACORTENE 25MG TABS SINCE 3 YEARS
     Route: 048

REACTIONS (7)
  - MALAISE [None]
  - PLEURAL EFFUSION [None]
  - DIARRHOEA [None]
  - RESPIRATORY FAILURE [None]
  - CARDIOGENIC SHOCK [None]
  - VOMITING [None]
  - RENAL FAILURE [None]
